FAERS Safety Report 8106997-0 (Version None)
Quarter: 2012Q1

REPORT INFORMATION
  Report Type: 
  Country: None (occurrence: None)
  Receive Date: 20120202
  Receipt Date: 20120202
  Transmission Date: 20120608
  Serious: Yes (Other)
  Sender: FDA-Public Use
  Company Number: None

PATIENT
  Age: 28 Year
  Sex: Female
  Weight: 59.874 kg

DRUGS (2)
  1. BACTRIM  DS GENERIC [Suspect]
     Indication: ACNE
     Dosage: DOUBLE STRENGTH 800/160
     Route: 048
     Dates: start: 20111124, end: 20111230
  2. CLINDAMYCIN PAC [Concomitant]
     Dosage: 1%
     Route: 061
     Dates: start: 20111201, end: 20120124

REACTIONS (1)
  - TOOTH DISCOLOURATION [None]
